FAERS Safety Report 5933757-9 (Version None)
Quarter: 2008Q4

REPORT INFORMATION
  Report Type: 
  Country: None (occurrence: None)
  Receive Date: 20081024
  Receipt Date: 20081015
  Transmission Date: 20090506
  Serious: Yes (Other)
  Sender: FDA-Public Use
  Company Number: 08H-163-0315057-00

PATIENT
  Age: 8 Year
  Sex: Male

DRUGS (4)
  1. A-METHAPRED [Suspect]
     Indication: LYMPHADENOPATHY
     Dosage: 10 MG/KG; 10 MG/KG, INTRAVENOUS; 5 MG/KG, INTRAVENOUS
     Route: 042
  2. A-METHAPRED [Suspect]
     Indication: PERICARDIAL DISEASE
     Dosage: 10 MG/KG; 10 MG/KG, INTRAVENOUS; 5 MG/KG, INTRAVENOUS
     Route: 042
  3. A-METHAPRED [Suspect]
     Indication: PLEURAL EFFUSION
     Dosage: 10 MG/KG; 10 MG/KG, INTRAVENOUS; 5 MG/KG, INTRAVENOUS
     Route: 042
  4. ANTIBIOTICS [Suspect]

REACTIONS (15)
  - ANAEMIA [None]
  - BONE INFARCTION [None]
  - BONE MARROW DISORDER [None]
  - CONDITION AGGRAVATED [None]
  - ERYTHEMA [None]
  - FEELING HOT [None]
  - HYPOXIA [None]
  - LEUKOCYTOSIS [None]
  - LUNG CONSOLIDATION [None]
  - LUNG INFILTRATION [None]
  - PAIN IN EXTREMITY [None]
  - PERICARDIAL DISEASE [None]
  - PLEURAL EFFUSION [None]
  - PULMONARY OEDEMA [None]
  - VASCULAR OCCLUSION [None]
